FAERS Safety Report 17450359 (Version 1)
Quarter: 2020Q1

REPORT INFORMATION
  Report Type: Spontaneous
  Country: US (occurrence: US)
  Receive Date: 20200224
  Receipt Date: 20200224
  Transmission Date: 20200409
  Serious: Yes (Life-Threatening, Hospitalization)
  Sender: FDA-Public Use
  Company Number: US-STRIDES ARCOLAB LIMITED-2020SP001705

PATIENT
  Age: 63 Year
  Sex: Female

DRUGS (2)
  1. IBUPROFEN. [Suspect]
     Active Substance: IBUPROFEN
     Indication: PAIN
  2. IBUPROFEN. [Suspect]
     Active Substance: IBUPROFEN
     Indication: SKIN ULCER
     Dosage: 800 MILLIGRAM ON AN AVERAGE OF 10-12 TABLETS PER DAY FOR THE PAST 10 MONTHS
     Route: 065

REACTIONS (7)
  - Hypokalaemia [Recovered/Resolved]
  - Renal tubular acidosis [Unknown]
  - Abdominal pain upper [Unknown]
  - Vomiting [Unknown]
  - Intentional product misuse [Unknown]
  - Renal impairment [Unknown]
  - Nausea [Unknown]
